FAERS Safety Report 4510271-9 (Version None)
Quarter: 2004Q4

REPORT INFORMATION
  Report Type: 
  Country: None (occurrence: None)
  Receive Date: 20041119
  Receipt Date: 20041103
  Transmission Date: 20050328
  Serious: Yes (Hospitalization)
  Sender: FDA-Public Use
  Company Number: S04-NLD-07599-01

PATIENT
  Age: 79 Year
  Sex: Female

DRUGS (8)
  1. CITALOPRAM HYDROBROMIDE [Suspect]
     Dates: end: 20040101
  2. DIOVAN [Suspect]
     Dosage: 80 MG QD PO
     Route: 048
     Dates: end: 20040101
  3. GLUCOPHAGE [Concomitant]
  4. ZOCOR [Concomitant]
  5. PRUNACOLON [Concomitant]
  6. TIMOPTIC [Concomitant]
  7. MOVICOLON [Concomitant]
  8. GLICLAZIDE [Concomitant]

REACTIONS (9)
  - BLOOD PRESSURE INCREASED [None]
  - CONFUSIONAL STATE [None]
  - DRUG INTERACTION [None]
  - FAECAL INCONTINENCE [None]
  - HAEMOGLOBIN DECREASED [None]
  - HYPONATRAEMIA [None]
  - INCONTINENCE [None]
  - NAUSEA [None]
  - URINARY INCONTINENCE [None]
